FAERS Safety Report 8836980 (Version 1)
Quarter: 2012Q4

REPORT INFORMATION
  Report Type: Spontaneous
  Country: US (occurrence: None)
  Receive Date: 20121011
  Receipt Date: 20121011
  Transmission Date: 20130627
  Serious: No
  Sender: FDA-Public Use
  Company Number: None

PATIENT
  Age: 29 Year
  Sex: Female
  Weight: 65.77 kg

DRUGS (7)
  1. YASMIN [Suspect]
     Dates: start: 20090112, end: 20110720
  2. LOESTRIN FE [Suspect]
     Dates: start: 20110721, end: 20120710
  3. NEXIUM [Concomitant]
  4. FISH OILS [Concomitant]
  5. CLARITIN [Concomitant]
  6. VITAMIN D [Concomitant]
  7. IRON [Concomitant]

REACTIONS (1)
  - Blood triglycerides increased [None]
